FAERS Safety Report 4861073-5 (Version None)
Quarter: 2005Q4

REPORT INFORMATION
  Report Type: 
  Country: None (occurrence: None)
  Receive Date: 20051220
  Receipt Date: 20051216
  Transmission Date: 20060501
  Serious: Yes (Hospitalization)
  Sender: FDA-Public Use
  Company Number: US-GLAXOSMITHKLINE-A0586106A

PATIENT
  Age: 55 Year
  Sex: Male

DRUGS (2)
  1. PARNATE [Suspect]
     Indication: DEPRESSION
     Dosage: 70MG PER DAY
     Route: 048
     Dates: start: 20050316
  2. HYTRIN [Concomitant]

REACTIONS (4)
  - CEREBRAL HAEMORRHAGE [None]
  - HEADACHE [None]
  - HYPERTENSIVE CRISIS [None]
  - HYPOTENSION [None]
